FAERS Safety Report 23037322 (Version 1)
Quarter: 2023Q4

REPORT INFORMATION
  Report Type: Spontaneous
  Country: CA (occurrence: CA)
  Receive Date: 20231006
  Receipt Date: 20231006
  Transmission Date: 20240110
  Serious: Yes (Other)
  Sender: FDA-Public Use
  Company Number: CA-drreddys-SPO/CAN/23/0178686

PATIENT
  Age: 30 Year
  Sex: Female

DRUGS (2)
  1. PROGESTERONE [Suspect]
     Active Substance: PROGESTERONE
     Indication: Hormonal contraception
  2. PROGESTERONE [Suspect]
     Active Substance: PROGESTERONE
     Indication: Contraception

REACTIONS (3)
  - Decidual cast [Unknown]
  - Dysmenorrhoea [Recovered/Resolved]
  - Product use in unapproved indication [Unknown]
